FAERS Safety Report 5419341-4 (Version None)
Quarter: 2007Q3

REPORT INFORMATION
  Report Type: 
  Country: None (occurrence: None)
  Receive Date: 20070815
  Receipt Date: 20070801
  Transmission Date: 20080115
  Serious: Yes (Hospitalization)
  Sender: FDA-Public Use
  Company Number: 07-001609

PATIENT
  Age: 57 Year
  Sex: Male
  Weight: 132.4 kg

DRUGS (12)
  1. DOVONEX [Suspect]
     Indication: PSORIASIS
     Dosage: QD, TOPICAL
     Route: 061
     Dates: start: 20040101, end: 20070601
  2. TRICOR /00499301/ (FENOFIBRATE) [Concomitant]
  3. LIPITOR [Concomitant]
  4. PRINIVIL [Concomitant]
  5. LASIX [Concomitant]
  6. METOPROLOL TARTRATE [Concomitant]
  7. FLOVENT [Concomitant]
  8. ALBUTEROL /00139501/ (SALBUTAMOL) [Concomitant]
  9. METFORMIN HCL [Concomitant]
  10. ALLEGRA /01314201/ (FEXOFENADINE) [Concomitant]
  11. ASPIRIN [Concomitant]
  12. NITROGLYCERIN [Concomitant]

REACTIONS (2)
  - CEREBROVASCULAR ACCIDENT [None]
  - PSORIASIS [None]
